FAERS Safety Report 10094452 (Version 1)
Quarter: 2014Q2

REPORT INFORMATION
  Report Type: Spontaneous
  Country: AU (occurrence: None)
  Receive Date: 20140418
  Receipt Date: 20140418
  Transmission Date: 20141212
  Serious: Yes (Hospitalization, Other)
  Sender: FDA-Public Use
  Company Number: AU-ALKEM-000560

PATIENT
  Age: 66 Year
  Sex: Male
  Weight: 80 kg

DRUGS (2)
  1. AMLODIPINE (AMLODIPINE) [Suspect]
  2. DABIGATRAN (DABIGATRAN) (DABIGA TRAN) [Suspect]

REACTIONS (9)
  - Continuous haemodiafiltration [None]
  - Intentional overdose [None]
  - Suicide attempt [None]
  - Somnolence [None]
  - Hypotension [None]
  - Bradycardia [None]
  - Coagulopathy [None]
  - Renal impairment [None]
  - Haemodynamic instability [None]
